FAERS Safety Report 5786329-3 (Version None)
Quarter: 2008Q2

REPORT INFORMATION
  Report Type: 
  Country: None (occurrence: None)
  Receive Date: 20080624
  Receipt Date: 20070810
  Transmission Date: 20081010
  Serious: No
  Sender: FDA-Public Use
  Company Number: US-ASTRAZENECA-2007UW19451

PATIENT
  Age: 82 Year
  Sex: Female
  Weight: 62.1 kg

DRUGS (4)
  1. PULMICORT RESPULES [Suspect]
     Route: 055
  2. ALBUTEROL [Concomitant]
  3. HYPERTENSION DRUG [Concomitant]
  4. CHOLESTEROL DRUG [Concomitant]

REACTIONS (3)
  - COUGH [None]
  - DYSPHONIA [None]
  - RHINORRHOEA [None]
